FAERS Safety Report 13178154 (Version 2)
Quarter: 2017Q1

REPORT INFORMATION
  Report Type: Report from Study
  Country: US (occurrence: US)
  Receive Date: 20170202
  Receipt Date: 20170302
  Transmission Date: 20170428
  Serious: Yes (Other)
  Sender: FDA-Public Use
  Company Number: PHEH2017US003295

PATIENT
  Age: 69 Year
  Sex: Female
  Weight: 97.4 kg

DRUGS (9)
  1. LISINOPRIL. [Concomitant]
     Active Substance: LISINOPRIL
     Indication: PRODUCT USED FOR UNKNOWN INDICATION
     Dosage: 1 DF, QD
     Route: 048
  2. GLEEVEC [Suspect]
     Active Substance: IMATINIB MESYLATE
     Indication: GASTROINTESTINAL STROMAL TUMOUR
     Dosage: UNK
     Route: 065
     Dates: start: 20140731, end: 20150102
  3. IRON [Concomitant]
     Active Substance: IRON
     Indication: PRODUCT USED FOR UNKNOWN INDICATION
     Dosage: 1 DF, TID
     Route: 048
  4. MECLIZINE HCL [Concomitant]
     Active Substance: MECLIZINE HYDROCHLORIDE
     Indication: PRODUCT USED FOR UNKNOWN INDICATION
     Dosage: 2 DF, BID (2 PO BID PRN)
     Route: 048
  5. DULCOLAX STOOL SOFTENER [Concomitant]
     Active Substance: DOCUSATE SODIUM
     Indication: PRODUCT USED FOR UNKNOWN INDICATION
     Dosage: 1 DF, BID (1 PO BID PRN)
     Route: 048
  6. OMEPRAZOLE. [Concomitant]
     Active Substance: OMEPRAZOLE
     Indication: PRODUCT USED FOR UNKNOWN INDICATION
     Dosage: 1 DF, QD
     Route: 048
  7. GLIPIZIDE. [Concomitant]
     Active Substance: GLIPIZIDE
     Indication: PRODUCT USED FOR UNKNOWN INDICATION
     Dosage: 2 DF, BID
     Route: 048
  8. SUTENT [Concomitant]
     Active Substance: SUNITINIB MALATE
     Indication: PRODUCT USED FOR UNKNOWN INDICATION
     Dosage: 1 DF, QD FOR 28 DAYS AND THEN OFF 14 DAYS
     Route: 048
  9. LOVASTATIN. [Concomitant]
     Active Substance: LOVASTATIN
     Indication: PRODUCT USED FOR UNKNOWN INDICATION
     Dosage: 1 DF, QD (WITH EVENING MEAL)
     Route: 048

REACTIONS (23)
  - Nausea [Unknown]
  - Dyspnoea [Unknown]
  - Haematocrit decreased [Unknown]
  - Hypertension [Unknown]
  - Hodgkin^s disease [Unknown]
  - Diabetes mellitus [Unknown]
  - Obesity [Unknown]
  - Fatigue [Unknown]
  - Depression [Unknown]
  - Haemoglobin decreased [Unknown]
  - Rash [Unknown]
  - Second primary malignancy [Unknown]
  - Lymphoma [Unknown]
  - Somnolence [Unknown]
  - Eosinophil count increased [Unknown]
  - Malignant melanoma [Unknown]
  - Blood pressure systolic increased [Unknown]
  - Nodule [Unknown]
  - Platelet count increased [Unknown]
  - Blood alkaline phosphatase decreased [Unknown]
  - Anxiety [Unknown]
  - Lymphocyte count decreased [Unknown]
  - Gastrooesophageal reflux disease [Unknown]

NARRATIVE: CASE EVENT DATE: 201409
